FAERS Safety Report 9039067 (Version 1)
Quarter: 2013Q1

REPORT INFORMATION
  Report Type: Spontaneous
  Country: US (occurrence: US)
  Receive Date: 20130129
  Receipt Date: 20130129
  Transmission Date: 20140127
  Serious: Yes (Hospitalization, Other)
  Sender: FDA-Public Use
  Company Number: US-009507513-1301USA012776

PATIENT
  Sex: Female

DRUGS (8)
  1. SINGULAIR [Suspect]
  2. DIPHENHYDRAMINE HYDROCHLORIDE [Suspect]
  3. CETIRIZINE HYDROCHLORIDE [Suspect]
  4. CIPROFLOXACIN [Suspect]
  5. DEXTROMETHORPHAN (+) GUAIFENESIN [Suspect]
  6. GUAIFENESIN [Suspect]
  7. DEXTROMETHORPHAN [Suspect]
  8. CEFADROXIL [Suspect]

REACTIONS (1)
  - Suicide attempt [Unknown]
